APPROVED DRUG PRODUCT: DEUTETRABENAZINE
Active Ingredient: DEUTETRABENAZINE
Strength: 6MG
Dosage Form/Route: TABLET;ORAL
Application: A215971 | Product #001
Applicant: AUROBINDO PHARMA LTD
Approved: Dec 26, 2024 | RLD: No | RS: No | Type: DISCN